FAERS Safety Report 4897071-5 (Version None)
Quarter: 2006Q1

REPORT INFORMATION
  Report Type: 
  Country: None (occurrence: None)
  Receive Date: 20060127
  Receipt Date: 20060110
  Transmission Date: 20060701
  Serious: No
  Sender: FDA-Public Use
  Company Number: EWC051046973

PATIENT
  Age: 81 Year
  Sex: Female

DRUGS (1)
  1. OLANZAPINE                (OLANZAPINE) [Suspect]
     Indication: ADJUSTMENT DISORDER
     Dosage: 2.5 MG, DAILY (1/D), ORAL
     Route: 048
     Dates: start: 20020601, end: 20021227

REACTIONS (6)
  - CONDITION AGGRAVATED [None]
  - DEPRESSED MOOD [None]
  - INAPPROPRIATE ANTIDIURETIC HORMONE SECRETION [None]
  - RENAL FAILURE CHRONIC [None]
  - URINARY TRACT INFECTION [None]
  - WEIGHT DECREASED [None]
